FAERS Safety Report 9646262 (Version 3)
Quarter: 2014Q1

REPORT INFORMATION
  Report Type: Report from Study
  Country: DE (occurrence: DE)
  Receive Date: 20131025
  Receipt Date: 20140224
  Transmission Date: 20141002
  Serious: Yes (Hospitalization)
  Sender: FDA-Public Use
  Company Number: DE-ABBVIE-13P-062-1159983-00

PATIENT
  Sex: Female

DRUGS (2)
  1. HUMIRA [Suspect]
     Indication: CROHN^S DISEASE
     Route: 058
     Dates: start: 20081118, end: 20120601
  2. HUMIRA [Suspect]
     Route: 058
     Dates: start: 20140202

REACTIONS (3)
  - Gastrointestinal disorder [Recovering/Resolving]
  - Large intestinal ulcer [Recovering/Resolving]
  - Short-bowel syndrome [Recovering/Resolving]
